FAERS Safety Report 12206507 (Version 3)
Quarter: 2016Q2

REPORT INFORMATION
  Report Type: Spontaneous
  Country: US (occurrence: US)
  Receive Date: 20160324
  Receipt Date: 20160527
  Transmission Date: 20160815
  Serious: No
  Sender: FDA-Public Use
  Company Number: US-PFIZER INC-2016161955

PATIENT
  Age: 83 Year
  Sex: Female
  Weight: 77 kg

DRUGS (8)
  1. LOSARTAN. [Concomitant]
     Active Substance: LOSARTAN
     Indication: CARDIAC DISORDER
     Dosage: 100 MG TABLET, 1 IN THE MORNING AND 1/2 AT NIGHT
  2. ISOSORB [Concomitant]
     Dosage: 30 MG, DAILY
  3. AMLODIPINE [Concomitant]
     Active Substance: AMLODIPINE BESYLATE
     Dosage: 1 DF, DAILY; 2.5
  4. REVATIO [Suspect]
     Active Substance: SILDENAFIL CITRATE
     Indication: ARTERIAL DISORDER
     Dosage: 20 MG, 3X/DAY BY MOUTH
     Route: 048
     Dates: start: 20160301, end: 20160314
  5. LEVOTHYROXINE. [Concomitant]
     Active Substance: LEVOTHYROXINE
     Indication: THYROID DISORDER
     Dosage: 1 DF, DAILY; 0.05
  6. LASIX [Concomitant]
     Active Substance: FUROSEMIDE
     Indication: DIURETIC THERAPY
     Dosage: 40 MG,  STAGGERED DOSE; MONDAY, WEDNESDAY, AND FRIDAY
  7. XARELTO [Concomitant]
     Active Substance: RIVAROXABAN
     Indication: BLOOD DISORDER
     Dosage: 20 MG, 1X/DAY IN THE EVENING
  8. GLIMEPIRIDE. [Concomitant]
     Active Substance: GLIMEPIRIDE
     Dosage: 2 MG, DAILY

REACTIONS (6)
  - Feeling abnormal [Recovering/Resolving]
  - Drug intolerance [Recovering/Resolving]
  - Vision blurred [Recovering/Resolving]
  - Insomnia [Recovering/Resolving]
  - Peripheral swelling [Recovering/Resolving]
  - Pain in extremity [Recovering/Resolving]

NARRATIVE: CASE EVENT DATE: 201603
